FAERS Safety Report 9232140 (Version 2)
Quarter: 2013Q2

REPORT INFORMATION
  Report Type: Report from Study
  Country: IT (occurrence: IT)
  Receive Date: 20130415
  Receipt Date: 20130422
  Transmission Date: 20140414
  Serious: Yes (Life-Threatening, Other)
  Sender: FDA-Public Use
  Company Number: IT-009507513-1304ITA005905

PATIENT
  Age: 40 Year
  Sex: Male

DRUGS (3)
  1. INTRONA [Suspect]
     Indication: MALIGNANT MELANOMA
     Dosage: 5 MUI THREE TIMES PER WEEK
  2. FOTEMUSTINE [Suspect]
     Indication: MALIGNANT MELANOMA
     Dosage: 100 MG/M2 ON DAY 1 REPEATED ON A 3 WEEK CYCLE
     Route: 042
  3. DACARBAZINE [Suspect]
     Indication: MALIGNANT MELANOMA
     Dosage: 900 MG/M2 ON DAY 2 REPEATED ON A 3 WEEK CYCLE
     Route: 042

REACTIONS (2)
  - Platelet toxicity [Unknown]
  - Neutropenia [Unknown]
